FAERS Safety Report 19327852 (Version 1)
Quarter: 2021Q2

REPORT INFORMATION
  Report Type: Spontaneous
  Country: CN (occurrence: CN)
  Receive Date: 20210528
  Receipt Date: 20210528
  Transmission Date: 20210717
  Serious: Yes (Hospitalization)
  Sender: FDA-Public Use
  Company Number: CN-BAXTER-2021BAX013355

PATIENT
  Age: 56 Year
  Sex: Female

DRUGS (4)
  1. SODIUM CHLORIDE. [Suspect]
     Active Substance: SODIUM CHLORIDE
     Indication: MEDICATION DILUTION
     Dosage: FIRST CYCLE OF ADJUVANT CHEMOTHERAPY: EC REGIMEN :CYCLOPHOSPHAMIDE 1 G + SODIUM CHLORIDE 250 ML, Q3W
     Route: 041
     Dates: start: 20210328, end: 20210329
  2. ENDOXAN [Suspect]
     Active Substance: CYCLOPHOSPHAMIDE
     Indication: BREAST CANCER FEMALE
     Dosage: FIRST CYCLE OF ADJUVANT CHEMOTHERAPY: EC REGIMEN :CYCLOPHOSPHAMIDE 1 G + SODIUM CHLORIDE 250 ML, QWK
     Route: 041
     Dates: start: 20210328, end: 20210329
  3. SODIUM CHLORIDE. [Suspect]
     Active Substance: SODIUM CHLORIDE
     Dosage: FIRST CYCLE OF ADJUVANT CHEMOTHERAPY: EC REGIMEN: EPIRUBICIN HYDROCHLORIDE 150 MG + SODIUM CHLORIDE
     Route: 041
     Dates: start: 20210328, end: 20210329
  4. EPIRUBICIN HYDROCHLORIDE. [Suspect]
     Active Substance: EPIRUBICIN HYDROCHLORIDE
     Indication: BREAST CANCER FEMALE
     Dosage: FIRST CYCLE OF ADJUVANT CHEMOTHERAPY: EC REGIMEN: EPIRUBICIN HYDROCHLORIDE 150 MG + SODIUM CHLORIDE
     Route: 041
     Dates: start: 20210328, end: 20210329

REACTIONS (3)
  - Nausea [Recovering/Resolving]
  - Dysphagia [Recovering/Resolving]
  - Vomiting [Recovering/Resolving]

NARRATIVE: CASE EVENT DATE: 20210330
